FAERS Safety Report 11023182 (Version 3)
Quarter: 2015Q2

REPORT INFORMATION
  Report Type: Spontaneous
  Country: AU (occurrence: AU)
  Receive Date: 20150413
  Receipt Date: 20150424
  Transmission Date: 20150821
  Serious: Yes (Other)
  Sender: FDA-Public Use
  Company Number: AU-SA-2015SA045645

PATIENT
  Sex: Female

DRUGS (1)
  1. STILNOX [Suspect]
     Active Substance: ZOLPIDEM TARTRATE
     Indication: SLEEP DISORDER
     Route: 048

REACTIONS (4)
  - Memory impairment [Unknown]
  - Seizure [Unknown]
  - Insomnia [Unknown]
  - Drug ineffective [Unknown]
